FAERS Safety Report 4809974-8 (Version None)
Quarter: 2005Q4

REPORT INFORMATION
  Report Type: 
  Country: None (occurrence: None)
  Receive Date: 20051024
  Receipt Date: 20051024
  Transmission Date: 20060501
  Serious: Yes (Hospitalization)
  Sender: FDA-Public Use
  Company Number: None

PATIENT
  Age: 57 Year
  Sex: Male

DRUGS (10)
  1. WARFARIN [Suspect]
     Dosage: 7.5MG  TTSA, 5MG MWFSU
     Dates: start: 20050101, end: 20050822
  2. OMEPRAZOLE [Concomitant]
  3. SULFAMETHOXAZOLE + TRIMETHOPRIM [Concomitant]
  4. OXYCODONE + ACETAMIN [Concomitant]
  5. BISACODYL [Concomitant]
  6. DOCUSATE [Concomitant]
  7. METOPROLOL TARTRATE [Concomitant]
  8. WARFARIN [Concomitant]
  9. CALCIUM CARBONATE [Concomitant]
  10. ASPIRIN [Concomitant]

REACTIONS (4)
  - HAEMATOCRIT DECREASED [None]
  - INCORRECT DOSE ADMINISTERED [None]
  - INTERNATIONAL NORMALISED RATIO INCREASED [None]
  - OCCULT BLOOD POSITIVE [None]
